FAERS Safety Report 5131411-7 (Version None)
Quarter: 2006Q4

REPORT INFORMATION
  Report Type: 
  Country: None (occurrence: None)
  Receive Date: 20061020
  Receipt Date: 20060608
  Transmission Date: 20070319
  Serious: Yes (Hospitalization)
  Sender: FDA-Public Use
  Company Number: FR-GLAXOSMITHKLINE-B0427014A

PATIENT
  Age: 22 Month
  Sex: Male
  Weight: 13 kg

DRUGS (5)
  1. ZOVIRAX [Suspect]
     Indication: PROPHYLAXIS
     Dosage: 200MG FOUR TIMES PER DAY
     Route: 048
     Dates: start: 20051001, end: 20060701
  2. BACTRIM [Suspect]
     Dosage: 7.5ML PER DAY
     Route: 048
     Dates: start: 20051001, end: 20060701
  3. NEXIUM [Suspect]
     Indication: PROPHYLAXIS
     Route: 065
     Dates: start: 20060501
  4. CYCLOSPORINE [Concomitant]
     Indication: PROPHYLAXIS AGAINST TRANSPLANT REJECTION
     Dosage: 20MG TWICE PER DAY
     Route: 048
     Dates: start: 20051001, end: 20060701
  5. HYDROCORTISONE HEMISUCCINATE [Concomitant]
     Dosage: 5MG TWICE PER DAY
     Route: 048
     Dates: start: 20051001

REACTIONS (11)
  - AGRANULOCYTOSIS [None]
  - ANAEMIA HAEMOLYTIC AUTOIMMUNE [None]
  - BLOOD BILIRUBIN INCREASED [None]
  - BONE MARROW FAILURE [None]
  - C-REACTIVE PROTEIN INCREASED [None]
  - HAEMATOCHEZIA [None]
  - HEPATIC ENZYME INCREASED [None]
  - NEUTROPENIA [None]
  - PLATELET COUNT DECREASED [None]
  - PYREXIA [None]
  - STRESS ULCER [None]
